FAERS Safety Report 5335134-0 (Version None)
Quarter: 2007Q2

REPORT INFORMATION
  Report Type: 
  Country: None (occurrence: None)
  Receive Date: 20070525
  Receipt Date: 20070518
  Transmission Date: 20071010
  Serious: Yes (Other)
  Sender: FDA-Public Use
  Company Number: US-PFIZER INC-2007040628

PATIENT
  Sex: Female

DRUGS (6)
  1. LYRICA [Suspect]
     Indication: BACK PAIN
  2. LYRICA [Suspect]
     Indication: NERVE COMPRESSION
  3. PERCOCET [Concomitant]
  4. VICODIN [Concomitant]
  5. NEXIUM [Concomitant]
  6. XANAX [Concomitant]

REACTIONS (1)
  - SURGERY [None]
